FAERS Safety Report 23140103 (Version 1)
Quarter: 2023Q4

REPORT INFORMATION
  Report Type: Spontaneous
  Country: US (occurrence: US)
  Receive Date: 20231102
  Receipt Date: 20231102
  Transmission Date: 20240110
  Serious: Yes (Other)
  Sender: FDA-Public Use
  Company Number: US-PFIZER INC-202300349481

PATIENT
  Age: 45 Year
  Sex: Female

DRUGS (5)
  1. VANCOMYCIN HYDROCHLORIDE [Suspect]
     Active Substance: VANCOMYCIN HYDROCHLORIDE
     Dosage: UNK
  2. WARFARIN [Concomitant]
     Active Substance: WARFARIN
     Indication: Pulmonary embolism
     Dosage: 5 MG
  3. WARFARIN [Concomitant]
     Active Substance: WARFARIN
     Dosage: 7.5 MG
  4. PROPRANOLOL HYDROCHLORIDE [Concomitant]
     Active Substance: PROPRANOLOL HYDROCHLORIDE
     Indication: Palpitations
     Dosage: 20 MG
  5. FUROSEMIDE [Concomitant]
     Active Substance: FUROSEMIDE
     Indication: Fluid retention
     Dosage: 40 MG

REACTIONS (6)
  - Renal impairment [Recovered/Resolved with Sequelae]
  - Rash [Unknown]
  - Memory impairment [Unknown]
  - Weight increased [Unknown]
  - Dysuria [Unknown]
  - Limb injury [Unknown]
